FAERS Safety Report 23865192 (Version 1)
Quarter: 2024Q2

REPORT INFORMATION
  Report Type: Spontaneous
  Country: JP (occurrence: JP)
  Receive Date: 20240517
  Receipt Date: 20240517
  Transmission Date: 20240716
  Serious: Yes (Other)
  Sender: FDA-Public Use
  Company Number: JP-TAKEDA-2024TJP006497

PATIENT
  Sex: Male

DRUGS (1)
  1. LEUPLIN [Suspect]
     Active Substance: LEUPROLIDE ACETATE
     Indication: Prostate cancer
     Dosage: UNK?PRO FOR INJECTION KIT 22.5 MG
     Route: 050

REACTIONS (6)
  - Herpes zoster [Unknown]
  - Skin haemorrhage [Unknown]
  - Swelling [Unknown]
  - Injection site pain [Unknown]
  - Pain [Unknown]
  - Dyspnoea [Unknown]
